FAERS Safety Report 7413808-5 (Version None)
Quarter: 2011Q2

REPORT INFORMATION
  Report Type: 
  Country: None (occurrence: None)
  Receive Date: 20110413
  Receipt Date: 20110405
  Transmission Date: 20111010
  Serious: Yes (Other)
  Sender: FDA-Public Use
  Company Number: US-MERCK-1101USA01054

PATIENT
  Age: 62 Year
  Sex: Female

DRUGS (4)
  1. FOSAMAX [Suspect]
     Indication: OSTEOPOROSIS
     Route: 048
  2. FOSAMAX [Suspect]
     Route: 048
     Dates: start: 19990101
  3. FOSAMAX [Suspect]
     Route: 048
  4. FOSAMAX [Suspect]
     Route: 065
     Dates: start: 20080208

REACTIONS (8)
  - ALVEOLAR OSTEITIS [None]
  - VAGINAL LESION [None]
  - OSTEOMYELITIS [None]
  - RADICULOPATHY [None]
  - TOOTH INFECTION [None]
  - OSTEONECROSIS OF JAW [None]
  - ARTHROPATHY [None]
  - OSTEOPENIA [None]
